FAERS Safety Report 4287380-5 (Version None)
Quarter: 2004Q1

REPORT INFORMATION
  Report Type: 
  Country: None (occurrence: None)
  Receive Date: 20040209
  Receipt Date: 20030616
  Transmission Date: 20041129
  Serious: No
  Sender: FDA-Public Use
  Company Number: US-GLAXOSMITHKLINE-A0412485A

PATIENT
  Age: 69 Year
  Sex: Female

DRUGS (5)
  1. PAXIL CR [Suspect]
     Indication: OBSESSIVE-COMPULSIVE DISORDER
     Dosage: 25MG PER DAY
     Route: 048
     Dates: start: 20030201
  2. LIPITOR [Concomitant]
  3. FOSAMAX [Concomitant]
  4. UNSPECIFIED MEDICATIONS [Concomitant]
  5. UNSPECIFIED MEDICATIONS [Concomitant]

REACTIONS (4)
  - MUSCULAR WEAKNESS [None]
  - NIGHT SWEATS [None]
  - PAIN [None]
  - TREMOR [None]
